FAERS Safety Report 21597718 (Version 2)
Quarter: 2022Q4

REPORT INFORMATION
  Report Type: Report from Study
  Country: US (occurrence: US)
  Receive Date: 20221115
  Receipt Date: 20221117
  Transmission Date: 20230112
  Serious: Yes (Other)
  Sender: FDA-Public Use
  Company Number: US-SANOFI-01347301

PATIENT
  Age: 31 Year
  Sex: Female

DRUGS (1)
  1. DUPILUMAB [Suspect]
     Active Substance: DUPILUMAB
     Indication: Eosinophilic oesophagitis
     Dosage: 300 MG QW
     Route: 058
     Dates: start: 20221031

REACTIONS (10)
  - Deafness [Recovered/Resolved]
  - Loss of consciousness [Unknown]
  - Presyncope [Recovered/Resolved]
  - Panic attack [Recovered/Resolved]
  - Screaming [Recovered/Resolved]
  - Injection site pain [Recovered/Resolved]
  - Injection site pruritus [Unknown]
  - Injection site erythema [Unknown]
  - Product preparation error [Unknown]
  - Incorrect dose administered [Unknown]

NARRATIVE: CASE EVENT DATE: 20221031
